FAERS Safety Report 9748077 (Version 1)
Quarter: 2013Q4

REPORT INFORMATION
  Report Type: Spontaneous
  Country: US (occurrence: US)
  Receive Date: 20131212
  Receipt Date: 20131212
  Transmission Date: 20140711
  Serious: No
  Sender: FDA-Public Use
  Company Number: US-TEVA-388014USA

PATIENT
  Sex: Female
  Weight: 59.93 kg

DRUGS (5)
  1. PARAGARD 380A [Suspect]
     Indication: CONTRACEPTION
     Route: 015
     Dates: start: 20121228
  2. CELEXA [Concomitant]
  3. NASONEX [Concomitant]
  4. AMLODIPINE BESILATE [Concomitant]
  5. ASPIRIN [Concomitant]

REACTIONS (1)
  - Device expulsion [Recovered/Resolved]
